FAERS Safety Report 6776662-0 (Version None)
Quarter: 2010Q2

REPORT INFORMATION
  Report Type: 
  Country: None (occurrence: None)
  Receive Date: 20100617
  Receipt Date: 20100617
  Transmission Date: 20101027
  Serious: Yes (Hospitalization)
  Sender: FDA-Public Use
  Company Number: None

PATIENT
  Sex: Male
  Weight: 67 kg

DRUGS (2)
  1. BUSULFAN [Suspect]
     Dosage: 974 MG
  2. CYCLOPHOSPHAMIDE [Suspect]
     Dosage: 8000 MG

REACTIONS (1)
  - FEBRILE NEUTROPENIA [None]
